FAERS Safety Report 21231454 (Version 1)
Quarter: 2022Q3

REPORT INFORMATION
  Report Type: Spontaneous
  Country: US (occurrence: US)
  Receive Date: 20220819
  Receipt Date: 20220819
  Transmission Date: 20221027
  Serious: No
  Sender: FDA-Public Use
  Company Number: US-SANOFI-01231847

PATIENT
  Age: 90 Year
  Sex: Male

DRUGS (1)
  1. LANTUS SOLOSTAR [Suspect]
     Active Substance: INSULIN GLARGINE
     Indication: Diabetes mellitus
     Dosage: UNK, BID, 20 UNITS IN MORNING, AND 10 UNITS IN EVENING

REACTIONS (2)
  - Inappropriate schedule of product administration [Unknown]
  - Product storage error [Unknown]
